FAERS Safety Report 5429629-9 (Version None)
Quarter: 2007Q3

REPORT INFORMATION
  Report Type: 
  Country: None (occurrence: None)
  Receive Date: 20070731
  Receipt Date: 20070413
  Transmission Date: 20080115
  Serious: No
  Sender: FDA-Public Use
  Company Number: US200704003267

PATIENT
  Age: 37 Year
  Sex: Female

DRUGS (2)
  1. BYETTA [Suspect]
     Indication: INSULIN-REQUIRING TYPE II DIABETES MELLITUS
     Dosage: 5 UG, 2/D, SUBCUTANEOUS
     Route: 058
     Dates: start: 20070411
  2. EXENATIDE 5MCG PEN, DISPOSABLE DEVICE (EXENATIDE PEN (5MCG) PEN,DISPOS [Concomitant]

REACTIONS (3)
  - DECREASED APPETITE [None]
  - FATIGUE [None]
  - SOMNOLENCE [None]
